FAERS Safety Report 7336613-7 (Version None)
Quarter: 2011Q1

REPORT INFORMATION
  Report Type: 
  Country: None (occurrence: None)
  Receive Date: 20110307
  Receipt Date: 20110228
  Transmission Date: 20110831
  Serious: Yes (Other)
  Sender: FDA-Public Use
  Company Number: DE-BRISTOL-MYERS SQUIBB COMPANY-15583289

PATIENT
  Age: 30 Year
  Sex: Male

DRUGS (2)
  1. TAVOR [Suspect]
     Dosage: 1MG:30AUG10-2SEP10 0.5MG:3SEP10-5SEP10
     Route: 048
     Dates: start: 20100830, end: 20100905
  2. ABILIFY [Suspect]
     Dosage: 4SEP10(WITH RESERVATION).
     Route: 048
     Dates: start: 20100831

REACTIONS (1)
  - HICCUPS [None]
